FAERS Safety Report 25107528 (Version 1)
Quarter: 2025Q1

REPORT INFORMATION
  Report Type: Report from Study
  Country: RO (occurrence: RO)
  Receive Date: 20250321
  Receipt Date: 20250321
  Transmission Date: 20250409
  Serious: Yes (Death, Life-Threatening, Disabling, Other)
  Sender: ABBVIE
  Company Number: RO-ABBVIE-6190883

PATIENT
  Age: 78 Year
  Sex: Male

DRUGS (2)
  1. CARBIDOPA\LEVODOPA [Suspect]
     Active Substance: CARBIDOPA\LEVODOPA
     Indication: Parkinson^s disease
     Route: 050
     Dates: start: 20201023, end: 20250317
  2. CARBIDOPA\LEVODOPA [Suspect]
     Active Substance: CARBIDOPA\LEVODOPA

REACTIONS (3)
  - Cardio-respiratory arrest [Fatal]
  - Choking [Not Recovered/Not Resolved]
  - Immobile [Unknown]

NARRATIVE: CASE EVENT DATE: 20230701
